FAERS Safety Report 4567617-5 (Version None)
Quarter: 2005Q1

REPORT INFORMATION
  Report Type: 
  Country: None (occurrence: None)
  Receive Date: 20050118
  Receipt Date: 20040809
  Transmission Date: 20050727
  Serious: Yes (Other)
  Sender: FDA-Public Use
  Company Number: HQWYE121010AUG04

PATIENT
  Age: 55 Year
  Sex: Female
  Weight: 99.88 kg

DRUGS (6)
  1. PREMPHASE 14/14 [Suspect]
     Indication: MENOPAUSE
     Dosage: 0.625MG/5MG, ORAL
     Route: 048
     Dates: start: 20000101, end: 20040731
  2. LESCOL [Concomitant]
  3. LEXAPRO [Concomitant]
  4. KLONOPIN [Concomitant]
  5. SOMA [Concomitant]
  6. TYLENOL [Concomitant]

REACTIONS (1)
  - THROMBOPHLEBITIS SUPERFICIAL [None]
